FAERS Safety Report 7521673-0 (Version None)
Quarter: 2011Q2

REPORT INFORMATION
  Report Type: 
  Country: None (occurrence: None)
  Receive Date: 20110524
  Receipt Date: 20110516
  Transmission Date: 20111010
  Serious: Yes (Hospitalization)
  Sender: FDA-Public Use
  Company Number: CIP11001215

PATIENT
  Age: 15 Year
  Sex: Female

DRUGS (3)
  1. TYLENOL /00020001/ (PARACETAMOL) [Concomitant]
  2. ASACOL [Suspect]
     Indication: INFLAMMATORY BOWEL DISEASE
     Dosage: 400 MG, DAILY, ORAL; 3600 MG DAILY, ORAL
     Route: 048
     Dates: start: 20110504, end: 20110501
  3. ASACOL [Suspect]
     Indication: INFLAMMATORY BOWEL DISEASE
     Dosage: 400 MG, DAILY, ORAL; 3600 MG DAILY, ORAL
     Route: 048
     Dates: start: 20110510

REACTIONS (2)
  - HEADACHE [None]
  - HAEMORRHAGE INTRACRANIAL [None]
